FAERS Safety Report 9423191 (Version 1)
Quarter: 2013Q3

REPORT INFORMATION
  Report Type: Report from Study
  Country: DE (occurrence: DE)
  Receive Date: 20130726
  Receipt Date: 20130726
  Transmission Date: 20140515
  Serious: Yes (Other)
  Sender: FDA-Public Use
  Company Number: DE-B.I. PHARMACEUTICALS,INC./RIDGEFIELD-2013-DE-01904DE

PATIENT
  Age: 82 Year
  Sex: Female

DRUGS (7)
  1. AGGRENOX [Suspect]
     Dosage: 4 ANZ
     Route: 048
     Dates: start: 20130720, end: 20130720
  2. BELOC ZOK [Suspect]
     Route: 048
     Dates: start: 20130720, end: 20130720
  3. LISINOPRIL [Suspect]
     Route: 048
     Dates: start: 20130720, end: 20130720
  4. CARMEN [Suspect]
     Route: 048
     Dates: start: 20130720, end: 20130720
  5. GLIB-RATIOPHARM [Suspect]
     Dosage: 1 ANZ
     Route: 048
     Dates: start: 20130720, end: 20130720
  6. KEPPRA [Suspect]
     Dosage: 4 ANZ
     Route: 048
     Dates: start: 20130720, end: 20130720
  7. SIMVASTATIN [Suspect]
     Dosage: 4 ANZ
     Route: 048
     Dates: start: 20130720, end: 20130720

REACTIONS (1)
  - Medication error [Unknown]
